FAERS Safety Report 6071186-0 (Version None)
Quarter: 2009Q1

REPORT INFORMATION
  Report Type: 
  Country: None (occurrence: None)
  Receive Date: 20090209
  Receipt Date: 20090130
  Transmission Date: 20090719
  Serious: Yes (Other)
  Sender: FDA-Public Use
  Company Number: US-CELGENEUS-163-20785-08090673

PATIENT
  Sex: Male

DRUGS (10)
  1. THALOMID [Suspect]
     Indication: MULTIPLE MYELOMA
     Route: 048
     Dates: start: 20060911
  2. THALOMID [Suspect]
     Dosage: 50-100 MG
     Route: 048
     Dates: start: 20061201, end: 20080318
  3. ALLEGRA [Concomitant]
     Indication: DRUG USE FOR UNKNOWN INDICATION
     Route: 065
  4. LISINOPRIL [Concomitant]
     Indication: DRUG USE FOR UNKNOWN INDICATION
     Route: 065
     Dates: start: 20051026
  5. PROTONIX [Concomitant]
     Indication: DRUG USE FOR UNKNOWN INDICATION
     Route: 065
     Dates: start: 20060901
  6. VITAMIN B6 [Concomitant]
     Indication: DRUG USE FOR UNKNOWN INDICATION
     Route: 065
     Dates: start: 20070501
  7. VICODIN [Concomitant]
     Route: 065
  8. FLEXERIL [Concomitant]
     Indication: DRUG USE FOR UNKNOWN INDICATION
     Route: 065
     Dates: start: 20081013
  9. DEXAMETHASONE TAB [Concomitant]
     Indication: DRUG USE FOR UNKNOWN INDICATION
     Route: 065
  10. NEXIUM [Concomitant]
     Indication: DRUG USE FOR UNKNOWN INDICATION
     Route: 065

REACTIONS (3)
  - BLOOD BILIRUBIN INCREASED [None]
  - LIPOSARCOMA [None]
  - LIVER FUNCTION TEST ABNORMAL [None]
